FAERS Safety Report 7818217-2 (Version None)
Quarter: 2011Q4

REPORT INFORMATION
  Report Type: 
  Country: None (occurrence: None)
  Receive Date: 20111017
  Receipt Date: 20111014
  Transmission Date: 20120403
  Serious: Yes (Death, Hospitalization, Other)
  Sender: FDA-Public Use
  Company Number: JP-B.I. PHARMACEUTICALS,INC./RIDGEFIELD-2011-BP-23056NB

PATIENT
  Sex: Female
  Weight: 73.2 kg

DRUGS (12)
  1. CLARITHROMYCIN [Concomitant]
     Indication: ASTHMA
     Dosage: 400 MG
     Route: 065
     Dates: start: 20110407
  2. DILTIAZEM HCL [Concomitant]
     Indication: ANGINA PECTORIS
     Dosage: 200 MG
     Route: 065
     Dates: start: 20110412
  3. SYMBICORT [Concomitant]
     Indication: ASTHMA
     Dosage: 2 PUF
     Route: 055
     Dates: start: 20110407
  4. ALENDRONATE SODIUM [Concomitant]
     Dosage: 35 MG
     Route: 065
  5. INDAPAMIDE [Concomitant]
     Dosage: 1 MG
     Route: 065
  6. MUCODYNE [Concomitant]
     Indication: ASTHMA
     Dosage: 1500 MG
     Route: 065
     Dates: start: 20110407
  7. PRADAXA [Suspect]
     Indication: ATRIAL FIBRILLATION
     Dosage: 220 MG
     Route: 048
     Dates: start: 20110412, end: 20110430
  8. ISOSORBIDE MONONITRATE [Concomitant]
     Indication: ANGINA PECTORIS
     Dosage: 40 MG
     Route: 065
     Dates: start: 20110407
  9. ATELEC [Concomitant]
     Dosage: 10 MG
     Route: 065
  10. MICARDIS [Concomitant]
     Dosage: 20 MG
     Route: 065
  11. MUCOSTA [Concomitant]
     Dosage: 200 MG
     Route: 065
  12. PRAVASTAN [Concomitant]
     Dosage: 5 MG
     Route: 065

REACTIONS (7)
  - DISSEMINATED INTRAVASCULAR COAGULATION [None]
  - COAGULOPATHY [None]
  - ACTIVATED PARTIAL THROMBOPLASTIN TIME PROLONGED [None]
  - ANGINA PECTORIS [None]
  - ASTHMA [None]
  - ILEUS [None]
  - METABOLIC ACIDOSIS [None]
